FAERS Safety Report 7411736-2 (Version None)
Quarter: 2011Q2

REPORT INFORMATION
  Report Type: 
  Country: None (occurrence: None)
  Receive Date: 20110413
  Receipt Date: 20101210
  Transmission Date: 20111010
  Serious: Yes (Other)
  Sender: FDA-Public Use
  Company Number: US-BRISTOL-MYERS SQUIBB COMPANY-15436785

PATIENT
  Sex: Male

DRUGS (2)
  1. ERBITUX [Suspect]
     Indication: HEAD AND NECK CANCER
     Dosage: NO OF INFUSIONS:11
     Route: 042
     Dates: end: 20101101
  2. BENADRYL [Concomitant]
     Indication: PROPHYLAXIS
     Dosage: WITH EACH TREATMENT
     Route: 042

REACTIONS (1)
  - INFUSION RELATED REACTION [None]
